FAERS Safety Report 4721358-X (Version None)
Quarter: 2005Q3

REPORT INFORMATION
  Report Type: 
  Country: None (occurrence: None)
  Receive Date: 20050721
  Receipt Date: 20040715
  Transmission Date: 20060218
  Serious: No
  Sender: FDA-Public Use
  Company Number: US-BRISTOL-MYERS SQUIBB COMPANY-12642666

PATIENT
  Age: 66 Year
  Sex: Female
  Weight: 88 kg

DRUGS (5)
  1. COUMADIN [Suspect]
     Indication: ATRIAL FIBRILLATION
     Dosage: DOSAGE: 5MG AND 2.5MG ALTERNATING DAILY
     Route: 048
  2. COZAAR [Concomitant]
     Dosage: DURATION: ^FEW YEARS^
  3. TOPROL-XL [Concomitant]
     Dosage: DURATION: ^FEW YEARS^
  4. NORVASC [Concomitant]
  5. LIPITOR [Concomitant]
     Dosage: DURATION: ^AWHILE^

REACTIONS (2)
  - HEADACHE [None]
  - PAIN IN EXTREMITY [None]
